FAERS Safety Report 8791263 (Version 1)
Quarter: 2012Q4

REPORT INFORMATION
  Report Type: Spontaneous
  Country: US (occurrence: None)
  Receive Date: 20120914
  Receipt Date: 20120914
  Transmission Date: 20130627
  Serious: No
  Sender: FDA-Public Use
  Company Number: None

PATIENT
  Age: 77 Year
  Sex: Female

DRUGS (7)
  1. REVLIMID [Suspect]
     Indication: MULTIPLE MYELOMA
     Route: 048
     Dates: start: 201203
  2. REVLIMID [Suspect]
     Indication: MULTIPLE MYELOMA
  3. ACYCLOVIR [Concomitant]
  4. METOPROLOL [Concomitant]
  5. TARTRATE [Concomitant]
  6. HYDRALAZINE [Concomitant]
  7. OMEPRAZOLE [Concomitant]

REACTIONS (2)
  - Myalgia [None]
  - Muscle spasms [None]
